FAERS Safety Report 7234616-4 (Version None)
Quarter: 2011Q1

REPORT INFORMATION
  Report Type: 
  Country: None (occurrence: None)
  Receive Date: 20110120
  Receipt Date: 20110111
  Transmission Date: 20110831
  Serious: Yes (Hospitalization)
  Sender: FDA-Public Use
  Company Number: US-BIOGENIDEC-2010BI045198

PATIENT
  Age: 68 Year
  Sex: Female

DRUGS (16)
  1. METOPROLOL [Concomitant]
  2. COLACE [Concomitant]
  3. AVONEX [Suspect]
     Route: 030
     Dates: start: 20020101
  4. BACLOFEN [Concomitant]
  5. PROVIGIL [Concomitant]
  6. BENTYL [Concomitant]
  7. FOSAMAX [Concomitant]
  8. VITAMINS (NOS) [Concomitant]
  9. SPIRONOLACTONE [Concomitant]
  10. AVONEX [Suspect]
     Indication: MULTIPLE SCLEROSIS
     Route: 030
     Dates: start: 20100305
  11. CALCIUM [Concomitant]
  12. AMANTADINE HCL [Concomitant]
  13. ULTRAM [Concomitant]
  14. OXYBUTYNIN [Concomitant]
  15. PAXIL [Concomitant]
  16. DONNATAL [Concomitant]

REACTIONS (3)
  - FALL [None]
  - FEMUR FRACTURE [None]
  - RELAPSING-REMITTING MULTIPLE SCLEROSIS [None]
